FAERS Safety Report 5026132-5 (Version None)
Quarter: 2006Q2

REPORT INFORMATION
  Report Type: 
  Country: None (occurrence: None)
  Receive Date: 20060614
  Receipt Date: 20060609
  Transmission Date: 20061013
  Serious: Yes (Hospitalization)
  Sender: FDA-Public Use
  Company Number: GB-BOEHRINGER INGELHEIM PHARMACEUTICALS, INC.-2006-UK-02770UK

PATIENT
  Age: 74 Year
  Sex: Female

DRUGS (8)
  1. MOBIC [Suspect]
     Indication: ARTHRALGIA
     Route: 048
     Dates: start: 20030101, end: 20060503
  2. ACETYLSALICYLIC ACID SRT [Suspect]
     Indication: CARDIOVASCULAR EVENT PROPHYLAXIS
     Route: 048
     Dates: start: 20040101, end: 20060503
  3. SIMVASTATIN [Suspect]
     Indication: HYPERCHOLESTEROLAEMIA
     Route: 048
  4. FELODIPINE [Concomitant]
  5. CALCICHEW D3 [Concomitant]
  6. NICORANDIL [Concomitant]
     Indication: ISCHAEMIA
  7. ATENOLOL [Concomitant]
  8. LEVOTHYROXINE SODIUM [Concomitant]

REACTIONS (4)
  - ABDOMINAL PAIN UPPER [None]
  - DIZZINESS [None]
  - FAECES DISCOLOURED [None]
  - PEPTIC ULCER [None]
